FAERS Safety Report 26136995 (Version 1)
Quarter: 2025Q4

REPORT INFORMATION
  Report Type: Spontaneous
  Country: US (occurrence: None)
  Receive Date: 20251209
  Receipt Date: 20251209
  Transmission Date: 20260117
  Serious: Yes (Hospitalization)
  Sender: FDA-CTU
  Company Number: None

PATIENT
  Sex: Male
  Weight: 84.51 kg

DRUGS (1)
  1. CAPECITABINE [Suspect]
     Active Substance: CAPECITABINE
     Indication: Colon cancer
     Dosage: FREQUENCY : TWICE A DAY;
     Route: 048
     Dates: start: 20251016

REACTIONS (5)
  - Product dosage form issue [None]
  - Nonspecific reaction [None]
  - Nail bed bleeding [None]
  - Stomatitis [None]
  - Gastrointestinal infection [None]
